FAERS Safety Report 17111087 (Version 1)
Quarter: 2019Q4

REPORT INFORMATION
  Report Type: Spontaneous
  Country: US (occurrence: US)
  Receive Date: 20191111
  Receipt Date: 20191111
  Transmission Date: 20200122
  Serious: No
  Sender: FDA-Public Use
  Company Number: None

PATIENT
  Sex: Female

DRUGS (1)
  1. VERZENIO [Suspect]
     Active Substance: ABEMACICLIB
     Indication: ILL-DEFINED DISORDER
     Route: 048
     Dates: start: 20190520

REACTIONS (3)
  - Headache [None]
  - Abdominal pain upper [None]
  - Alopecia [None]
